FAERS Safety Report 8495369-5 (Version None)
Quarter: 2012Q3

REPORT INFORMATION
  Report Type: 
  Country: None (occurrence: None)
  Receive Date: 20120709
  Receipt Date: 20120625
  Transmission Date: 20120928
  Serious: Yes (Other)
  Sender: FDA-Public Use
  Company Number: GB-MYLANLABS-2012S1012839

PATIENT
  Sex: Female

DRUGS (3)
  1. OMEPRAZOLE [Concomitant]
     Indication: GASTRITIS
     Route: 048
     Dates: start: 20120501
  2. BUPRENORPHINE [Concomitant]
     Indication: ANALGESIC THERAPY
     Route: 062
     Dates: start: 20120326
  3. ALENDRONATE SODIUM [Suspect]
     Indication: OSTEONECROSIS
     Route: 048
     Dates: start: 20120330, end: 20120416

REACTIONS (4)
  - DENTAL DISCOMFORT [None]
  - PAIN IN JAW [None]
  - PAIN [None]
  - EPIGASTRIC DISCOMFORT [None]
